FAERS Safety Report 12696603 (Version 1)
Quarter: 2016Q3

REPORT INFORMATION
  Report Type: Spontaneous
  Country: NO (occurrence: NO)
  Receive Date: 20160830
  Receipt Date: 20160830
  Transmission Date: 20161109
  Serious: Yes (Disabling)
  Sender: FDA-Public Use
  Company Number: NO-SHIRE-NO201610628

PATIENT
  Sex: Female
  Weight: 53 kg

DRUGS (1)
  1. ELVANSE [Suspect]
     Active Substance: LISDEXAMFETAMINE DIMESYLATE
     Indication: ATTENTION DEFICIT/HYPERACTIVITY DISORDER
     Dosage: 30 MG, 1X/DAY:QD
     Route: 048
     Dates: start: 20160301

REACTIONS (19)
  - Muscle twitching [Recovered/Resolved]
  - Nasal congestion [Unknown]
  - Thirst [Unknown]
  - Throat tightness [Not Recovered/Not Resolved]
  - Diarrhoea [Unknown]
  - Cough [Unknown]
  - Constipation [Unknown]
  - Palpitations [Not Recovered/Not Resolved]
  - Hyperhidrosis [Not Recovered/Not Resolved]
  - Dry throat [Unknown]
  - Hypoaesthesia [Not Recovered/Not Resolved]
  - Pain in extremity [Recovered/Resolved]
  - Hot flush [Unknown]
  - Nausea [Unknown]
  - Erythema [Not Recovered/Not Resolved]
  - Head discomfort [Recovered/Resolved]
  - Sleep disorder [Not Recovered/Not Resolved]
  - Dizziness [Recovered/Resolved]
  - Abdominal pain [Recovered/Resolved]
